FAERS Safety Report 9883520 (Version 2)
Quarter: 2014Q1

REPORT INFORMATION
  Report Type: Spontaneous
  Country: NL (occurrence: NL)
  Receive Date: 20140210
  Receipt Date: 20140213
  Transmission Date: 20141002
  Serious: Yes (Other)
  Sender: FDA-Public Use
  Company Number: NL-ROCHE-1340927

PATIENT
  Age: 33 Year
  Sex: Female

DRUGS (2)
  1. RITUXIMAB [Suspect]
     Indication: THROMBOCYTOPENIA
     Route: 042
  2. PREDNISONE [Concomitant]
     Route: 065

REACTIONS (3)
  - Foetal hypokinesia [Recovered/Resolved]
  - Epistaxis [Unknown]
  - Maternal exposure during pregnancy [Unknown]
